FAERS Safety Report 23285128 (Version 2)
Quarter: 2024Q1

REPORT INFORMATION
  Report Type: Spontaneous
  Country: US (occurrence: None)
  Receive Date: 20231211
  Receipt Date: 20240130
  Transmission Date: 20240409
  Serious: No
  Sender: FDA-Public Use
  Company Number: 2023A269370

PATIENT

DRUGS (1)
  1. BREZTRI [Suspect]
     Active Substance: BUDESONIDE\FORMOTEROL\GLYCOPYRROLATE
     Indication: Chronic obstructive pulmonary disease
     Dosage: 160.0UG UNKNOWN
     Route: 055
     Dates: start: 20221101

REACTIONS (3)
  - Dyspnoea [Unknown]
  - Incorrect dose administered by device [Unknown]
  - Device delivery system issue [Unknown]
